FAERS Safety Report 9248127 (Version 1)
Quarter: 2013Q1

REPORT INFORMATION
  Report Type: Spontaneous
  Country: US (occurrence: None)
  Receive Date: 20130305
  Receipt Date: 20130305
  Transmission Date: 20140127
  Serious: Yes (Other)
  Sender: FDA-Public Use
  Company Number: 163-21880-12060761

PATIENT
  Age: 79 Year
  Sex: Male

DRUGS (11)
  1. REVLIMID [Suspect]
     Dosage: 25 MG, 21 IN 28 D, PO
     Route: 048
     Dates: start: 20110909
  2. VICODIN (VICODIN) [Concomitant]
  3. LOVENOX (HEPARIN-FRACTION, SODIUM SALT) [Concomitant]
  4. METFORMIN (METFORMIN) [Concomitant]
  5. ADVIL (IBUPROFEN) [Concomitant]
  6. ADVIL (IBUPROFEN) [Concomitant]
  7. VITAMIN B COMPLEX (B-KOMPLEX ^LECIVA) [Concomitant]
  8. CALCIUM PLUS D (OS-CAL) [Concomitant]
  9. ALEVE (NAPROXEN SODIUM) [Concomitant]
  10. GLUCOSAMINE CHONDROITIN (GLUCOSAMINE W/CHONDROITIN SULFATE) [Concomitant]
  11. CALCIUM/MAGNESIUM/ZINC (CALCIUM MAGNESIUM ZINC) [Concomitant]

REACTIONS (1)
  - Fatigue [None]
